FAERS Safety Report 4814542-8 (Version None)
Quarter: 2005Q4

REPORT INFORMATION
  Report Type: 
  Country: None (occurrence: None)
  Receive Date: 20051028
  Receipt Date: 20021031
  Transmission Date: 20060501
  Serious: Yes (Hospitalization)
  Sender: FDA-Public Use
  Company Number: GB-SOLVAY-00205003444

PATIENT
  Age: 29898 Day
  Sex: Male
  Weight: 86 kg

DRUGS (4)
  1. WARFARIN [Concomitant]
     Indication: ILL-DEFINED DISORDER
     Dosage: DAILY DOSE:  UNKNOWN
     Route: 065
  2. PERINDOPRIL [Suspect]
     Indication: CARDIAC FAILURE CONGESTIVE
     Dosage: DAILY DOSE: 4 MILLIGRAM(S)
     Route: 048
     Dates: start: 20000217
  3. FRUSEMIDE [Concomitant]
     Indication: ILL-DEFINED DISORDER
     Dosage: DAILY DOSE:  UNKNOWN
     Route: 065
  4. SIMVASTATIN [Concomitant]
     Indication: ILL-DEFINED DISORDER
     Dosage: DAILY DOSE:  UNKNOWN
     Route: 065

REACTIONS (3)
  - HAEMORRHOIDS [None]
  - LOSS OF CONSCIOUSNESS [None]
  - TRANSIENT ISCHAEMIC ATTACK [None]
